FAERS Safety Report 5016402-9 (Version None)
Quarter: 2006Q2

REPORT INFORMATION
  Report Type: 
  Country: None (occurrence: None)
  Receive Date: 20060531
  Receipt Date: 20060531
  Transmission Date: 20061013
  Serious: Yes (Death)
  Sender: FDA-Public Use
  Company Number: None

PATIENT
  Sex: Male

DRUGS (1)
  1. ENBREL [Suspect]
     Indication: PSORIASIS
     Dosage: 25 MG   TWICE DAILY  SQ
     Route: 058

REACTIONS (3)
  - KIDNEY INFECTION [None]
  - PNEUMONIA [None]
  - SINUSITIS [None]
